FAERS Safety Report 20642097 (Version 1)
Quarter: 2022Q1

REPORT INFORMATION
  Report Type: Spontaneous
  Country: US (occurrence: US)
  Receive Date: 20220328
  Receipt Date: 20220328
  Transmission Date: 20220423
  Serious: No
  Sender: FDA-Public Use
  Company Number: ALC2021US004873

PATIENT
  Sex: Male

DRUGS (4)
  1. PATADAY ONCE DAILY RELIEF [Suspect]
     Active Substance: OLOPATADINE HYDROCHLORIDE
     Indication: Eye pruritus
     Dosage: THE PATIENT HAS BEEN USING IT FOR ABOUT 4 WEEKS
     Route: 047
  2. PATADAY ONCE DAILY RELIEF [Suspect]
     Active Substance: OLOPATADINE HYDROCHLORIDE
     Indication: Dry eye
  3. VISINE A.C. [Concomitant]
     Active Substance: TETRAHYDROZOLINE HYDROCHLORIDE\ZINC SULFATE
     Indication: Eye pruritus
     Route: 065
  4. VISINE A.C. [Concomitant]
     Active Substance: TETRAHYDROZOLINE HYDROCHLORIDE\ZINC SULFATE
     Indication: Dry eye

REACTIONS (1)
  - Drug ineffective [Recovered/Resolved]

NARRATIVE: CASE EVENT DATE: 20210715
